FAERS Safety Report 8557587-7 (Version None)
Quarter: 2012Q3

REPORT INFORMATION
  Report Type: 
  Country: None (occurrence: None)
  Receive Date: 20120801
  Receipt Date: 20120718
  Transmission Date: 20120928
  Serious: Yes (Life-Threatening, Hospitalization, Congenital Anomaly, Other)
  Sender: FDA-Public Use
  Company Number: DE-WATSON-2012-12811

PATIENT
  Sex: Male
  Weight: 2 kg

DRUGS (3)
  1. FOLSAURE [Concomitant]
     Indication: PROPHYLAXIS OF NEURAL TUBE DEFECT
     Dosage: 0.8 MG, DAILY
     Route: 064
  2. CITALOPRAM HYDROBROMIDE [Suspect]
     Indication: BORDERLINE PERSONALITY DISORDER
     Dosage: 40 MG, DAILY
     Route: 064
     Dates: end: 20111118
  3. VENLAFAXINE HYDROCHLORIDE [Suspect]
     Indication: BORDERLINE PERSONALITY DISORDER
     Dosage: 150 MG DAILY REDUCED UNTIL GW26, THEN STOPPED
     Route: 064

REACTIONS (4)
  - HAEMANGIOMA CONGENITAL [None]
  - BRADYCARDIA NEONATAL [None]
  - LONG QT SYNDROME [None]
  - NEONATAL RESPIRATORY DISTRESS SYNDROME [None]
